FAERS Safety Report 7502615-0 (Version None)
Quarter: 2011Q2

REPORT INFORMATION
  Report Type: 
  Country: None (occurrence: None)
  Receive Date: 20110524
  Receipt Date: 20110524
  Transmission Date: 20111010
  Serious: Yes (Disabling)
  Sender: FDA-Public Use
  Company Number: None

PATIENT
  Age: 68 Year
  Sex: Female
  Weight: 97.5234 kg

DRUGS (1)
  1. COUMADIN [Suspect]
     Indication: THROMBOSIS PROPHYLAXIS
     Dosage: 5MG PER DAY ONCE A DAY PO
     Route: 048
     Dates: start: 20110210, end: 20110523

REACTIONS (3)
  - INTERNATIONAL NORMALISED RATIO DECREASED [None]
  - PRODUCT QUALITY ISSUE [None]
  - INTERNATIONAL NORMALISED RATIO INCREASED [None]
